FAERS Safety Report 11930734 (Version 1)
Quarter: 2016Q1

REPORT INFORMATION
  Report Type: Spontaneous
  Country: IT (occurrence: IT)
  Receive Date: 20160120
  Receipt Date: 20160120
  Transmission Date: 20160526
  Serious: Yes (Hospitalization)
  Sender: FDA-Public Use
  Company Number: IT-FRESENIUS KABI-FK201600328

PATIENT
  Age: 58 Year
  Sex: Female

DRUGS (2)
  1. ALL-TRANSRETINOIC ACID [Suspect]
     Active Substance: TRETINOIN
     Indication: ACUTE PROMYELOCYTIC LEUKAEMIA
     Route: 065
  2. IDARUBICIN HYDROCHLORIDE (MANUFACTURER UNKNOWN) [Suspect]
     Active Substance: IDARUBICIN HYDROCHLORIDE
     Indication: ACUTE PROMYELOCYTIC LEUKAEMIA
     Route: 065

REACTIONS (17)
  - Endocarditis bacterial [Recovered/Resolved]
  - Pneumonia [None]
  - Pseudomonas test positive [None]
  - Pneumothorax [None]
  - Pulmonary haemorrhage [None]
  - Enterobacter test positive [None]
  - Cardiac failure congestive [None]
  - Aplasia [None]
  - Acute respiratory distress syndrome [None]
  - Aortic valve incompetence [None]
  - Enterococcus test positive [None]
  - Klebsiella test positive [None]
  - Renal failure [None]
  - Mucormycosis [Recovered/Resolved]
  - Mucosal inflammation [None]
  - Gastrointestinal toxicity [None]
  - Candida test positive [None]
